FAERS Safety Report 13027180 (Version 2)
Quarter: 2016Q4

REPORT INFORMATION
  Report Type: Spontaneous
  Country: US (occurrence: US)
  Receive Date: 20161214
  Receipt Date: 20161214
  Transmission Date: 20170207
  Serious: No
  Sender: FDA-Public Use
  Company Number: US-ENDO PHARMACEUTICALS INC.-2016-006518

PATIENT
  Sex: Female
  Weight: 54.48 kg

DRUGS (1)
  1. HYDROCODONE BITARTRATE AND ACETAMINOPHEN [Suspect]
     Active Substance: ACETAMINOPHEN\HYDROCODONE BITARTRATE
     Indication: PAIN
     Dosage: 120 MG/ 1300 MG
     Route: 065
     Dates: start: 1996

REACTIONS (2)
  - Drug ineffective [Unknown]
  - Extra dose administered [Unknown]
